FAERS Safety Report 7608955-9 (Version None)
Quarter: 2011Q3

REPORT INFORMATION
  Report Type: 
  Country: None (occurrence: None)
  Receive Date: 20110714
  Receipt Date: 20110708
  Transmission Date: 20111222
  Serious: Yes (Death)
  Sender: FDA-Public Use
  Company Number: US-GLAXOSMITHKLINE-A0936723A

PATIENT
  Age: 81 Year
  Sex: Female
  Weight: 42.3 kg

DRUGS (7)
  1. PANTOPRAZOLE SODIUM [Concomitant]
  2. SIMVASTATIN [Concomitant]
  3. CALCIUM CARBONATE [Concomitant]
  4. XELODA [Concomitant]
  5. ZETIA [Concomitant]
  6. ADVAIR DISKUS 100/50 [Concomitant]
  7. TYKERB [Suspect]
     Dosage: 1250MG PER DAY
     Route: 048
     Dates: start: 20110330

REACTIONS (1)
  - DEATH [None]
